FAERS Safety Report 6965774-4 (Version None)
Quarter: 2010Q3

REPORT INFORMATION
  Report Type: 
  Country: None (occurrence: None)
  Receive Date: 20100903
  Receipt Date: 20100826
  Transmission Date: 20110219
  Serious: Yes (Other)
  Sender: FDA-Public Use
  Company Number: HU-ROCHE-724515

PATIENT
  Sex: Female

DRUGS (1)
  1. TRASTUZUMAB [Suspect]
     Indication: BREAST CANCER
     Route: 042
     Dates: start: 20080207

REACTIONS (2)
  - BLOOD ALKALINE PHOSPHATASE ABNORMAL [None]
  - HEPATIC FUNCTION ABNORMAL [None]
